FAERS Safety Report 8368026-3 (Version None)
Quarter: 2012Q2

REPORT INFORMATION
  Report Type: 
  Country: None (occurrence: None)
  Receive Date: 20120517
  Receipt Date: 20120507
  Transmission Date: 20120825
  Serious: Yes (Other)
  Sender: FDA-Public Use
  Company Number: US-BAXTER-2012BAX004992

PATIENT
  Sex: Female
  Weight: 108 kg

DRUGS (13)
  1. NITROFURANTOIN [Concomitant]
     Route: 048
  2. VITAMIN D [Concomitant]
     Route: 048
  3. MAGNESIUM [Concomitant]
     Route: 048
  4. PANTOPRAZOLE [Concomitant]
     Route: 048
  5. HYOSCYAMINE SULFATE [Concomitant]
     Dosage: 0.25
     Route: 048
  6. GLUCOSAMINE/CHONDROTIN [Concomitant]
     Dosage: 1500
     Route: 048
  7. GAMMAGARD LIQUID [Suspect]
     Indication: MULTIPLE SCLEROSIS
     Route: 042
     Dates: start: 20031101
  8. DIAZEPAM [Concomitant]
     Dosage: 2 TABS
     Route: 048
  9. GAMMAGARD LIQUID [Suspect]
     Indication: MYASTHENIA GRAVIS
  10. METHADONE [Concomitant]
     Route: 048
  11. CALCIUM [Concomitant]
     Route: 048
  12. GAMMAGARD LIQUID [Suspect]
  13. OXYCODONE HCL [Concomitant]
     Dosage: 1-2 TAB
     Route: 048

REACTIONS (14)
  - MYOCARDIAL INFARCTION [None]
  - IMPAIRED HEALING [None]
  - NEOPLASM PROGRESSION [None]
  - DIZZINESS [None]
  - NAUSEA [None]
  - BLOOD PRESSURE INCREASED [None]
  - VOMITING [None]
  - MIGRAINE [None]
  - HEADACHE [None]
  - CONVULSION [None]
  - BACTERIAL INFECTION [None]
  - CHILLS [None]
  - VISUAL IMPAIRMENT [None]
  - NECK PAIN [None]
